FAERS Safety Report 10285947 (Version 1)
Quarter: 2014Q3

REPORT INFORMATION
  Report Type: Spontaneous
  Country: BR (occurrence: BR)
  Receive Date: 20140709
  Receipt Date: 20140709
  Transmission Date: 20150326
  Serious: Yes (Other)
  Sender: FDA-Public Use
  Company Number: PHHY2014BR080878

PATIENT
  Age: 59 Year
  Sex: Male

DRUGS (4)
  1. NADOLOL. [Suspect]
     Active Substance: NADOLOL
     Indication: MIGRAINE
     Dosage: 1 DF (10 MG), DAILY
     Route: 048
  2. DIOVAN [Suspect]
     Active Substance: VALSARTAN
     Indication: HYPERTENSION
     Dosage: 1 DF (80 MG, DIVIDED IN 4 TIMES), DAILY
     Route: 048
  3. DIOVAN [Suspect]
     Active Substance: VALSARTAN
     Dosage: 1 DF (80 MG), DAILY
     Route: 048
  4. NADOLOL. [Suspect]
     Active Substance: NADOLOL
     Indication: HEART RATE ABNORMAL
     Dosage: 1 DF (40 MG), DAILY
     Route: 048

REACTIONS (8)
  - Dysgeusia [Recovered/Resolved]
  - Drug prescribing error [Unknown]
  - Wrong technique in drug usage process [Unknown]
  - Pain [Recovering/Resolving]
  - Abdominal pain upper [Recovered/Resolved]
  - Chest pain [Recovering/Resolving]
  - Endocarditis [Unknown]
  - Chest discomfort [Recovering/Resolving]

NARRATIVE: CASE EVENT DATE: 201311
